FAERS Safety Report 4776816-9 (Version None)
Quarter: 2005Q3

REPORT INFORMATION
  Report Type: 
  Country: None (occurrence: None)
  Receive Date: 20050923
  Receipt Date: 20050914
  Transmission Date: 20060218
  Serious: Yes (Other)
  Sender: FDA-Public Use
  Company Number: PHEH2005US10208

PATIENT
  Age: 55 Year
  Sex: Female

DRUGS (7)
  1. ZELNORM [Suspect]
     Indication: CONSTIPATION
     Dosage: 6 MG, BID
     Route: 048
     Dates: start: 20031117, end: 20040706
  2. ZELNORM [Suspect]
     Dosage: 6 MG, BID
     Route: 048
     Dates: start: 20050703
  3. TOPAMAX [Concomitant]
     Dosage: 200 MG, UNK
  4. OXAZEPAM [Concomitant]
     Indication: ANXIETY
     Dosage: 10 MG, UNK
  5. NEXIUM [Concomitant]
     Dates: start: 20050909
  6. FOSAMAX ONCE WEEKLY [Concomitant]
     Dosage: UNK, QW
  7. COLACE [Concomitant]
     Dates: start: 20050703

REACTIONS (11)
  - ABDOMINAL PAIN [None]
  - BACK PAIN [None]
  - CONSTIPATION [None]
  - DIARRHOEA [None]
  - ERUCTATION [None]
  - FLATULENCE [None]
  - GALLBLADDER DISORDER [None]
  - GASTROOESOPHAGEAL REFLUX DISEASE [None]
  - NAUSEA [None]
  - OESOPHAGITIS [None]
  - WEIGHT DECREASED [None]
